FAERS Safety Report 25236581 (Version 6)
Quarter: 2025Q3

REPORT INFORMATION
  Report Type: Spontaneous
  Country: JP (occurrence: JP)
  Receive Date: 20250424
  Receipt Date: 20250707
  Transmission Date: 20251020
  Serious: Yes (Hospitalization, Other)
  Sender: ASTELLAS
  Company Number: JP-ASTELLAS-2025-AER-022477

PATIENT
  Age: 7 Decade
  Sex: Male

DRUGS (4)
  1. PADCEV [Suspect]
     Active Substance: ENFORTUMAB VEDOTIN-EJFV
     Indication: Bladder cancer
     Dosage: ONCE WEEKLY FOR 2 CONSECUTIVE WEEKS, INTERRUPTED IN THE 3RD WEEK
     Route: 042
     Dates: start: 20241212, end: 20250410
  2. PADCEV [Suspect]
     Active Substance: ENFORTUMAB VEDOTIN-EJFV
     Dosage: REDUCED, ONCE WEEKLY FOR 2 CONSECUTIVE WEEKS, INTERRUPTED IN THE 3RD WEEK
     Route: 042
     Dates: start: 20250520, end: 20250527
  3. PEMBROLIZUMAB [Suspect]
     Active Substance: PEMBROLIZUMAB
     Indication: Bladder cancer
     Dosage: EVERY 3 WEEKS
     Route: 042
     Dates: start: 20241212, end: 20250410
  4. PEMBROLIZUMAB [Suspect]
     Active Substance: PEMBROLIZUMAB
     Dosage: REDUCED
     Route: 042
     Dates: start: 20250520, end: 20250527

REACTIONS (2)
  - Inappropriate antidiuretic hormone secretion [Recovered/Resolved]
  - Vomiting [Recovered/Resolved]

NARRATIVE: CASE EVENT DATE: 20250410
